FAERS Safety Report 5331245-4 (Version None)
Quarter: 2007Q1

REPORT INFORMATION
  Report Type: 
  Country: None (occurrence: None)
  Receive Date: 20070227
  Receipt Date: 20060109
  Transmission Date: 20070707
  Serious: Yes (Other)
  Sender: FDA-Public Use
  Company Number: 431297

PATIENT

DRUGS (2)
  1. ISOTRETINOIN [Suspect]
     Indication: ACNE
     Dosage: ORAL
     Route: 048
     Dates: start: 19970124, end: 19970821
  2. ORAL CONTRACEPTIVES NOS (ORAL CONTRACEPTIVES NOS) [Concomitant]

REACTIONS (1)
  - ABORTION MISSED [None]
